FAERS Safety Report 10431302 (Version 3)
Quarter: 2014Q4

REPORT INFORMATION
  Report Type: Report from Study
  Country: US (occurrence: US)
  Receive Date: 20140904
  Receipt Date: 20141029
  Transmission Date: 20150528
  Serious: No
  Sender: FDA-Public Use
  Company Number: US-NOVOPROD-405222

PATIENT
  Age: 4 Year
  Sex: Female
  Weight: 18.1 kg

DRUGS (5)
  1. RECOMBINANT FXIII NOVO NORDISK [Suspect]
     Active Substance: FACTOR XIII CONCENTRATE (HUMAN)
     Indication: FACTOR XIII DEFICIENCY
     Dosage: 35 IU/KG, MONTHLY
     Route: 042
     Dates: start: 20111208
  2. MULTIVITAMIN                       /00097801/ [Concomitant]
     Active Substance: VITAMINS
     Indication: NUTRITIONAL SUPPLEMENTATION
     Dosage: 1 TAB, QD
     Route: 048
     Dates: start: 20110630
  3. RECOMBINANT FXIII NOVO NORDISK [Suspect]
     Active Substance: FACTOR XIII CONCENTRATE (HUMAN)
     Dosage: 35 IU, UNK
     Route: 042
     Dates: start: 20140328, end: 20140328
  4. PATANASE [Concomitant]
     Active Substance: OLOPATADINE HYDROCHLORIDE
     Indication: RHINITIS
     Dosage: 1 SPRAY EACH NOSTRIL, BID
     Route: 045
     Dates: start: 20130222
  5. CULTURELLE [Concomitant]
     Active Substance: LACTOBACILLUS RHAMNOSUS
     Indication: GASTROENTERITIS VIRAL
     Dosage: UNK [CULTURELLE PROBIOTIC]
     Dates: start: 20140214

REACTIONS (3)
  - Rash [Recovered/Resolved]
  - Rash [Recovered/Resolved]
  - Rash [Recovered/Resolved]

NARRATIVE: CASE EVENT DATE: 20130524
